FAERS Safety Report 8713076 (Version 2)
Quarter: 2012Q4

REPORT INFORMATION
  Report Type: 
  Country: CA (occurrence: CA)
  Receive Date: 20120808
  Receipt Date: 20121012
  Transmission Date: 20130627
  Serious: Yes (Other)
  Sender: FDA-Public Use
  Company Number: CA-PFIZER INC-2012190695

PATIENT
  Age: 38 Year
  Sex: Male
  Weight: 98 kg

DRUGS (4)
  1. PRISTIQ [Suspect]
     Indication: GENERALISED ANXIETY DISORDER
     Dosage: 50 mg, 1x/day
     Route: 048
     Dates: start: 20120618, end: 20120803
  2. ZOLOFT [Suspect]
     Indication: GENERALISED ANXIETY DISORDER
     Dosage: 25 mg, 1x/day
     Route: 048
     Dates: start: 20120217, end: 20120618
  3. RIVOTRIL [Concomitant]
     Indication: GENERALISED ANXIETY DISORDER
     Dosage: 0.5 (units not provided)  as needed
     Route: 048
     Dates: start: 20120504
  4. ALTACE [Concomitant]
     Indication: HYPERTENSION
     Dosage: 5 mg 1 tablet daily
     Route: 048
     Dates: start: 2006

REACTIONS (3)
  - Intestinal haemorrhage [Recovered/Resolved]
  - Rectal haemorrhage [Recovered/Resolved]
  - Diarrhoea [Recovered/Resolved]
